FAERS Safety Report 12163765 (Version 2)
Quarter: 2016Q1

REPORT INFORMATION
  Report Type: Spontaneous
  Country: US (occurrence: US)
  Receive Date: 20160309
  Receipt Date: 20160325
  Transmission Date: 20160526
  Serious: Yes (Death, Hospitalization)
  Sender: FDA-Public Use
  Company Number: US-BAXTER-2016BAX011089

PATIENT
  Age: 72 Year
  Sex: Male

DRUGS (1)
  1. DIANEAL LOW CALCIUM PERITONEAL DIALYSIS SOLUTION WITH DEXTROSE [Suspect]
     Active Substance: CALCIUM CHLORIDE\DEXTROSE\MAGNESIUM CHLORIDE\SODIUM CHLORIDE\SODIUM LACTATE
     Indication: PERITONEAL DIALYSIS
     Route: 033

REACTIONS (10)
  - Balance disorder [Unknown]
  - Acute kidney injury [Unknown]
  - Faecaloma [Unknown]
  - End stage renal disease [Fatal]
  - Hepatic failure [Unknown]
  - Liver disorder [Unknown]
  - Limb injury [Unknown]
  - Renal failure [Unknown]
  - Cardiac disorder [Unknown]
  - Peritonitis [Unknown]

NARRATIVE: CASE EVENT DATE: 20151225
